FAERS Safety Report 16635144 (Version 6)
Quarter: 2022Q4

REPORT INFORMATION
  Report Type: Report from Study
  Country: JP (occurrence: JP)
  Receive Date: 20190726
  Receipt Date: 20221221
  Transmission Date: 20230113
  Serious: Yes (Life-Threatening, Hospitalization, Disabling, Other)
  Sender: FDA-Public Use
  Company Number: JP-GLAXOSMITHKLINE-JP2017JPN160693

PATIENT

DRUGS (9)
  1. DOLUTEGRAVIR [Suspect]
     Active Substance: DOLUTEGRAVIR
     Indication: HIV infection
     Dosage: 50 MG, 1D
     Route: 048
     Dates: start: 20141105, end: 20141221
  2. DOLUTEGRAVIR [Suspect]
     Active Substance: DOLUTEGRAVIR
     Dosage: 50 MG, 1D
     Route: 048
     Dates: start: 20150123, end: 20200915
  3. EPZICOM [Suspect]
     Active Substance: ABACAVIR SULFATE\LAMIVUDINE
     Indication: HIV infection
     Dosage: 1 DF, 1D
     Route: 048
     Dates: start: 20141105, end: 20141221
  4. EPZICOM [Suspect]
     Active Substance: ABACAVIR SULFATE\LAMIVUDINE
     Dosage: 1 DF, 1D
     Route: 048
     Dates: start: 20150123, end: 20200915
  5. ALFAROL [Concomitant]
     Active Substance: ALFACALCIDOL
     Dosage: UNK
     Dates: end: 20220116
  6. RABEPRAZOLE SODIUM [Concomitant]
     Active Substance: RABEPRAZOLE SODIUM
     Dosage: UNK
  7. ALLEGRA [Concomitant]
     Active Substance: FEXOFENADINE HYDROCHLORIDE
     Dosage: UNK
  8. BIKTARVY [Concomitant]
     Active Substance: BICTEGRAVIR SODIUM\EMTRICITABINE\TENOFOVIR ALAFENAMIDE FUMARATE
     Indication: HIV infection
     Dosage: 1 DF, 1D
     Dates: start: 20200916
  9. ALENDRONATE SODIUM [Concomitant]
     Active Substance: ALENDRONATE SODIUM
     Dosage: UNK
     Dates: start: 20220117

REACTIONS (11)
  - Femoral neck fracture [Recovering/Resolving]
  - Ulna fracture [Recovering/Resolving]
  - Immune reconstitution inflammatory syndrome [Not Recovered/Not Resolved]
  - Cytomegalovirus chorioretinitis [Not Recovered/Not Resolved]
  - Cataract [Not Recovered/Not Resolved]
  - Anogenital warts [Recovering/Resolving]
  - Listeraemia [Recovered/Resolved]
  - Anogenital warts [Recovered/Resolved]
  - Squamous cell carcinoma [Recovering/Resolving]
  - Influenza [Recovered/Resolved]
  - Bursitis infective [Recovered/Resolved]

NARRATIVE: CASE EVENT DATE: 20141219
